FAERS Safety Report 4695893-7 (Version None)
Quarter: 2005Q2

REPORT INFORMATION
  Report Type: 
  Country: None (occurrence: None)
  Receive Date: 20050621
  Receipt Date: 20050406
  Transmission Date: 20051028
  Serious: Yes (Other)
  Sender: FDA-Public Use
  Company Number: US-GLAXOSMITHKLINE-A0552943A

PATIENT
  Age: 51 Year
  Sex: Female
  Weight: 113.6 kg

DRUGS (7)
  1. ABREVA [Suspect]
     Indication: HERPES SIMPLEX
     Route: 061
     Dates: start: 20050405, end: 20050405
  2. PREVACID [Concomitant]
  3. ZANAFLEX [Concomitant]
  4. NEURONTIN [Concomitant]
     Dosage: 800MG THREE TIMES PER DAY
  5. OXYCONTIN [Concomitant]
     Indication: SURGERY
     Dosage: 20MG TWICE PER DAY
  6. OXY-IR [Concomitant]
     Dosage: 10MG TWICE PER DAY
  7. SEROQUEL [Concomitant]

REACTIONS (15)
  - ANXIETY [None]
  - BLOOD PRESSURE INCREASED [None]
  - DYSPHAGIA [None]
  - HYPOAESTHESIA [None]
  - LIP BLISTER [None]
  - LIP DISCOLOURATION [None]
  - LIP DISORDER [None]
  - PAIN [None]
  - PAIN IN JAW [None]
  - PALLOR [None]
  - PARAESTHESIA [None]
  - PHARYNGEAL OEDEMA [None]
  - SENSATION OF FOREIGN BODY [None]
  - SKIN LESION [None]
  - SWELLING FACE [None]
